FAERS Safety Report 9411467 (Version 1)
Quarter: 2013Q3

REPORT INFORMATION
  Report Type: Spontaneous
  Country: US (occurrence: None)
  Receive Date: 20130718
  Receipt Date: 20130718
  Transmission Date: 20140515
  Serious: Yes (Other)
  Sender: FDA-Public Use
  Company Number: None

PATIENT
  Sex: 0

DRUGS (1)
  1. ROCURONIUM [Suspect]
     Dosage: 50 MG ONCE  IV BOLUS
     Route: 040
     Dates: start: 20130714, end: 20130717

REACTIONS (1)
  - Drug ineffective [None]
